FAERS Safety Report 13215800 (Version 1)
Quarter: 2017Q1

REPORT INFORMATION
  Report Type: Report from Study
  Country: US (occurrence: US)
  Receive Date: 20170209
  Receipt Date: 20170209
  Transmission Date: 20170428
  Serious: Yes (Hospitalization, Other)
  Sender: FDA-Public Use
  Company Number: US-ASTRAZENECA-2016SE67472

PATIENT
  Age: 63 Year
  Sex: Female

DRUGS (9)
  1. SEROQUEL XR [Suspect]
     Active Substance: QUETIAPINE FUMARATE
     Indication: DEPRESSION
     Route: 048
  2. CLORABENZINE [Concomitant]
     Dosage: 10.0MG UNKNOWN
  3. PROTONIX [Concomitant]
     Active Substance: PANTOPRAZOLE SODIUM
     Indication: GASTROOESOPHAGEAL REFLUX DISEASE
  4. TRILEPTAL [Concomitant]
     Active Substance: OXCARBAZEPINE
  5. SEROQUEL XR [Suspect]
     Active Substance: QUETIAPINE FUMARATE
     Indication: DEPRESSION
     Dosage: 300MG PLUS 100MG FOR A TOTAL OF 400MG AT NIGHT
     Route: 048
     Dates: start: 2015, end: 201605
  6. WARFARIN [Concomitant]
     Active Substance: WARFARIN
     Indication: ANTICOAGULANT THERAPY
     Route: 065
  7. LEXAPRO [Concomitant]
     Active Substance: ESCITALOPRAM OXALATE
     Dosage: 10.0MG UNKNOWN
  8. LASIX [Concomitant]
     Active Substance: FUROSEMIDE
     Indication: OEDEMA
     Route: 065
  9. VITAMINS [Concomitant]
     Active Substance: VITAMINS
     Indication: FEELING OF RELAXATION

REACTIONS (29)
  - Cardiac failure [Not Recovered/Not Resolved]
  - Neuroleptic malignant syndrome [Unknown]
  - Gastrooesophageal reflux disease [Unknown]
  - Depression [Unknown]
  - Blood magnesium decreased [Not Recovered/Not Resolved]
  - Dry mouth [Unknown]
  - Cataract [Unknown]
  - Activities of daily living impaired [Unknown]
  - Tremor [Unknown]
  - Dizziness [Not Recovered/Not Resolved]
  - Blood triglycerides increased [Recovered/Resolved]
  - Weight increased [Not Recovered/Not Resolved]
  - Constipation [Unknown]
  - Hepatic enzyme increased [Recovered/Resolved]
  - Helicobacter infection [Unknown]
  - Ubiquinone decreased [Unknown]
  - Dysphagia [Unknown]
  - Restless legs syndrome [Not Recovered/Not Resolved]
  - Eye contusion [Not Recovered/Not Resolved]
  - Thrombosis [Not Recovered/Not Resolved]
  - Thyroid function test abnormal [Unknown]
  - Tardive dyskinesia [Not Recovered/Not Resolved]
  - Fall [Not Recovered/Not Resolved]
  - Seizure [Recovered/Resolved]
  - Oedema [Recovered/Resolved]
  - Craniocerebral injury [Unknown]
  - White blood cell count decreased [Unknown]
  - Blood glucose increased [Recovered/Resolved]
  - Oedema peripheral [Not Recovered/Not Resolved]
